FAERS Safety Report 8059659-2 (Version None)
Quarter: 2012Q1

REPORT INFORMATION
  Report Type: 
  Country: None (occurrence: None)
  Receive Date: 20120119
  Receipt Date: 20120119
  Transmission Date: 20120608
  Serious: Yes (Hospitalization)
  Sender: FDA-Public Use
  Company Number: None

PATIENT
  Age: 82 Year
  Sex: Male
  Weight: 44.6 kg

DRUGS (11)
  1. KEFLEX [Concomitant]
  2. VITAMIN D [Concomitant]
  3. ACETAMINOPHEN [Concomitant]
  4. MIRALAX [Concomitant]
  5. SENOKOT [Concomitant]
  6. NORO [Concomitant]
  7. LISINOPRIL AND HYDROCHLOROTHIAZIDE [Concomitant]
  8. COUMADIN [Suspect]
     Indication: THROMBOSIS PROPHYLAXIS
     Dosage: 5 MG DAILY PO RECENT RESTARTED
     Route: 048
  9. ASPIRIN [Suspect]
     Indication: CORONARY ARTERY DISEASE
     Dosage: 325 MG DAILY PO CHRONIC
     Route: 048
  10. PRAVASTATIN [Concomitant]
  11. ULTRAM [Concomitant]

REACTIONS (1)
  - UPPER GASTROINTESTINAL HAEMORRHAGE [None]
